FAERS Safety Report 16635415 (Version 3)
Quarter: 2019Q3

REPORT INFORMATION
  Report Type: Spontaneous
  Country: ES (occurrence: ES)
  Receive Date: 20190726
  Receipt Date: 20190826
  Transmission Date: 20191004
  Serious: Yes (Hospitalization, Other)
  Sender: FDA-Public Use
  Company Number: ES-ACCORD-145165

PATIENT
  Age: 55 Year
  Sex: Male
  Weight: 68 kg

DRUGS (9)
  1. CALCIUM/ERGOCALCIFEROL [Concomitant]
     Dates: start: 2018
  2. TENOFOVIR/TENOFOVIR DISOPROXIL FUMARATE [Suspect]
     Active Substance: TENOFOVIR DISOPROXIL FUMARATE
     Indication: HEPATITIS B
     Route: 048
     Dates: start: 201806, end: 201810
  3. COTRIMOXAZOLE [Concomitant]
     Active Substance: SULFAMETHOXAZOLE\TRIMETHOPRIM
     Dosage: 160/800 MG
     Dates: start: 2018
  4. ENALAPRIL [Concomitant]
     Active Substance: ENALAPRIL
     Dates: start: 2018
  5. MYCOPHENOLIC ACID. [Concomitant]
     Active Substance: MYCOPHENOLIC ACID
     Indication: IMMUNOSUPPRESSION
     Route: 048
     Dates: start: 201806
  6. TACROLIMUS. [Suspect]
     Active Substance: TACROLIMUS
     Indication: IMMUNOSUPPRESSION
     Route: 048
     Dates: start: 201806, end: 201810
  7. PREDNISONE. [Concomitant]
     Active Substance: PREDNISONE
     Indication: IMMUNOSUPPRESSION
     Dates: start: 2018
  8. FOLATE SODIUM/FOLIC ACID [Concomitant]
     Dates: start: 2018
  9. INSULIN [Concomitant]
     Active Substance: INSULIN NOS
     Dates: start: 2018

REACTIONS (3)
  - Tremor [Unknown]
  - Disturbance in attention [Unknown]
  - Fanconi syndrome [Recovered/Resolved]

NARRATIVE: CASE EVENT DATE: 20180915
